FAERS Safety Report 9230176 (Version 1)
Quarter: 2013Q2

REPORT INFORMATION
  Report Type: Spontaneous
  Country: US (occurrence: US)
  Receive Date: 20130415
  Receipt Date: 20130415
  Transmission Date: 20140414
  Serious: No
  Sender: FDA-Public Use
  Company Number: US-BAYER-2013-037336

PATIENT
  Age: 41 Year
  Sex: Male

DRUGS (1)
  1. AVELOX [Suspect]

REACTIONS (4)
  - Oesophageal discomfort [None]
  - Pruritus [None]
  - Swelling face [None]
  - Local swelling [None]
